FAERS Safety Report 25561812 (Version 1)
Quarter: 2025Q3

REPORT INFORMATION
  Report Type: Spontaneous
  Country: US (occurrence: US)
  Receive Date: 20250716
  Receipt Date: 20250716
  Transmission Date: 20251021
  Serious: Yes (Other)
  Sender: GLAXOSMITHKLINE
  Company Number: US-GLAXOSMITHKLINE INC-US2025AMR089290

PATIENT
  Sex: Female

DRUGS (1)
  1. NUCALA [Suspect]
     Active Substance: MEPOLIZUMAB
     Indication: Asthma
     Dosage: 100 MG, MO(EVERY 28 DAYS)

REACTIONS (5)
  - Glaucoma [Unknown]
  - Retinal detachment [Unknown]
  - Asthma [Unknown]
  - Nasopharyngitis [Unknown]
  - Multiple allergies [Unknown]
